APPROVED DRUG PRODUCT: PHYTONADIONE
Active Ingredient: PHYTONADIONE
Strength: 5MG
Dosage Form/Route: TABLET;ORAL
Application: A210189 | Product #001 | TE Code: AB
Applicant: ZYDUS LIFESCIENCES GLOBAL FZE
Approved: Feb 20, 2019 | RLD: No | RS: Yes | Type: RX